FAERS Safety Report 7542533-5 (Version None)
Quarter: 2011Q2

REPORT INFORMATION
  Report Type: 
  Country: None (occurrence: None)
  Receive Date: 20110524
  Receipt Date: 20110217
  Transmission Date: 20111010
  Serious: No
  Sender: FDA-Public Use
  Company Number: 025278

PATIENT
  Sex: Male

DRUGS (3)
  1. CIMZIA [Suspect]
     Indication: CROHN'S DISEASE
     Dosage: (SUBCUTANEOUS)
     Route: 058
     Dates: start: 20100315
  2. PREDNISONE [Concomitant]
  3. FERROUS SULFATE TAB [Concomitant]

REACTIONS (4)
  - VOMITING [None]
  - ABDOMINAL PAIN UPPER [None]
  - INFLUENZA [None]
  - INTESTINAL OBSTRUCTION [None]
